FAERS Safety Report 18258001 (Version 2)
Quarter: 2020Q4

REPORT INFORMATION
  Report Type: Spontaneous
  Country: CH (occurrence: CH)
  Receive Date: 20200911
  Receipt Date: 20201001
  Transmission Date: 20210113
  Serious: Yes (Other)
  Sender: FDA-Public Use
  Company Number: CH-PFIZER INC-2020346271

PATIENT
  Age: 21 Year
  Sex: Female

DRUGS (14)
  1. CEFTRIAXONE. [Suspect]
     Active Substance: CEFTRIAXONE
     Dosage: 2 G, DAILY
     Route: 042
     Dates: start: 20190504, end: 20190507
  2. ONDANSETRON [Suspect]
     Active Substance: ONDANSETRON
     Dosage: 4 MG, DAILY
     Dates: start: 20190504, end: 20190505
  3. TEMESTA EXPIDET [Concomitant]
     Active Substance: LORAZEPAM
     Dosage: UNK, AS NEEDED
  4. LEVOFLOXACINE [LEVOFLOXACIN] [Concomitant]
     Active Substance: LEVOFLOXACIN
     Dosage: UNK
     Dates: start: 20190507
  5. IRBESARTAN. [Suspect]
     Active Substance: IRBESARTAN
     Dosage: 300 MG, AS NEEDED
     Dates: start: 20180223
  6. IRBESARTAN. [Suspect]
     Active Substance: IRBESARTAN
     Dosage: 300 MG, DAILY
     Dates: start: 201904, end: 20190504
  7. VIBRAMYCINE [Suspect]
     Active Substance: DOXYCYCLINE HYDROCHLORIDE
     Dosage: 100 MG, SINGLE
     Route: 048
     Dates: start: 20190504, end: 20190504
  8. VIBRAMYCINE [Suspect]
     Active Substance: DOXYCYCLINE HYDROCHLORIDE
     Dosage: 100 MG, 2X/DAY
     Route: 042
     Dates: start: 20190504, end: 20190507
  9. PASPERTIN [METOCLOPRAMIDE HYDROCHLORIDE] [Suspect]
     Active Substance: METOCLOPRAMIDE HYDROCHLORIDE
     Dosage: 10 MG (IN TOTAL)
     Dates: start: 20190503, end: 20190503
  10. NACL [Concomitant]
     Active Substance: SODIUM CHLORIDE
     Dosage: 100 ML
     Dates: start: 20190504
  11. DROPERIDOL. [Suspect]
     Active Substance: DROPERIDOL
     Dosage: 0.5 MG, DAILY
     Route: 042
     Dates: start: 20190504, end: 20190505
  12. CLEXANE [Concomitant]
     Active Substance: ENOXAPARIN SODIUM
     Dosage: UNK
     Dates: start: 20190504
  13. SEVREDOL [Concomitant]
     Active Substance: MORPHINE
     Dosage: UNK, AS NEEDED
  14. METRONIDAZOLE. [Suspect]
     Active Substance: METRONIDAZOLE
     Dosage: 0.5 G, 3X/DAY
     Route: 042
     Dates: start: 20190504, end: 20190507

REACTIONS (2)
  - Incorrect route of product administration [Unknown]
  - Pancreatitis [Recovered/Resolved]

NARRATIVE: CASE EVENT DATE: 20190504
